FAERS Safety Report 14679854 (Version 1)
Quarter: 2018Q1

REPORT INFORMATION
  Report Type: Spontaneous
  Country: US (occurrence: US)
  Receive Date: 20180326
  Receipt Date: 20180326
  Transmission Date: 20180509
  Serious: Yes (Disabling, Other)
  Sender: FDA-Public Use
  Company Number: US-INDIVIOR LIMITED-INDV-109738-2018

PATIENT
  Sex: Female

DRUGS (3)
  1. SUBOXONE [Suspect]
     Active Substance: BUPRENORPHINE HYDROCHLORIDE\NALOXONE HYDROCHLORIDE
     Indication: DRUG DEPENDENCE
     Dosage: UNK
     Route: 060
  2. SYNTHROID [Concomitant]
     Active Substance: LEVOTHYROXINE SODIUM
     Indication: PRODUCT USED FOR UNKNOWN INDICATION
     Dosage: UNK
     Route: 065
  3. SUBOXONE [Suspect]
     Active Substance: BUPRENORPHINE HYDROCHLORIDE\NALOXONE HYDROCHLORIDE
     Dosage: CUTS 8MG FILM INTO HALF AND ADMINISTERS IN THE MORNING
     Route: 060

REACTIONS (9)
  - Wrong technique in product usage process [Not Recovered/Not Resolved]
  - Accident [Recovered/Resolved]
  - Muscle hernia [Unknown]
  - Disability [Unknown]
  - Scoliosis [Unknown]
  - Sluggishness [Unknown]
  - Gait disturbance [Unknown]
  - Muscle spasms [Unknown]
  - Back disorder [Unknown]
